FAERS Safety Report 25979096 (Version 1)
Quarter: 2025Q4

REPORT INFORMATION
  Report Type: Spontaneous
  Country: US (occurrence: None)
  Receive Date: 20251029
  Receipt Date: 20251029
  Transmission Date: 20260118
  Serious: Yes (Hospitalization)
  Sender: FDA-CTU
  Company Number: None

PATIENT
  Sex: Female

DRUGS (10)
  1. LENALIDOMIDE [Suspect]
     Active Substance: LENALIDOMIDE
     Indication: Plasma cell myeloma
     Dosage: TAKE 1 CAPSULE (25 MG) BY MOUTH EVERY MORNING FOR 21 DAYS, FOLLOWED BY 7 DAYS OFF. TAKE WHOLE WITH WATER. DO NOT BREAK, CHEW, OR OPEN?
     Route: 048
     Dates: start: 20250916
  2. ASPIRIN [Concomitant]
     Active Substance: ASPIRIN
  3. DARZALEX INJ FASPRO [Concomitant]
  4. DEXAMETHASONE [Concomitant]
     Active Substance: DEXAMETHASONE
  5. LIPITOR [Concomitant]
     Active Substance: ATORVASTATIN CALCIUM
  6. METHOCARBAMOL [Concomitant]
     Active Substance: METHOCARBAMOL
  7. ONDANSETRON [Concomitant]
     Active Substance: ONDANSETRON
  8. PERCOCET [Concomitant]
     Active Substance: ACETAMINOPHEN\OXYCODONE HYDROCHLORIDE
  9. VALTREX [Concomitant]
     Active Substance: VALACYCLOVIR HYDROCHLORIDE
  10. VELCADE [Concomitant]
     Active Substance: BORTEZOMIB

REACTIONS (2)
  - Therapy interrupted [None]
  - Infection [None]
